FAERS Safety Report 5963536-8 (Version None)
Quarter: 2008Q4

REPORT INFORMATION
  Report Type: 
  Country: None (occurrence: None)
  Receive Date: 20081120
  Receipt Date: 20081106
  Transmission Date: 20090506
  Serious: Yes (Life-Threatening, Hospitalization, Other)
  Sender: FDA-Public Use
  Company Number: 2008PV037080

PATIENT
  Age: 34 Year
  Sex: Female

DRUGS (9)
  1. SYMLIN [Suspect]
     Indication: TYPE 1 DIABETES MELLITUS
     Dosage: 60 MCG TID SC
     Route: 058
     Dates: start: 20050101
  2. HUMALOG [Concomitant]
  3. LANTUS [Concomitant]
  4. BUMETANIDE [Concomitant]
  5. LISINOPRIL [Concomitant]
  6. LEVOTHYROXINE SODIUM [Concomitant]
  7. SIMVASTATIN [Concomitant]
  8. VALIUM [Concomitant]
  9. LITHIUM CARBONATE [Concomitant]

REACTIONS (8)
  - ASPIRATION [None]
  - DIABETIC KETOACIDOSIS [None]
  - DIARRHOEA [None]
  - NASOPHARYNGITIS [None]
  - PNEUMONIA [None]
  - SOMNOLENCE [None]
  - THROMBOSIS [None]
  - VOMITING [None]
